FAERS Safety Report 9892572 (Version 2)
Quarter: 2014Q1

REPORT INFORMATION
  Report Type: Spontaneous
  Country: JP (occurrence: JP)
  Receive Date: 20140212
  Receipt Date: 20140224
  Transmission Date: 20141002
  Serious: Yes (Hospitalization)
  Sender: FDA-Public Use
  Company Number: PHHY2014JP015023

PATIENT
  Age: 46 Year
  Sex: Male
  Weight: 61 kg

DRUGS (3)
  1. OXALIPLATIN [Suspect]
     Indication: CHEMOTHERAPY
     Dosage: 140 MG, UNK
     Route: 042
     Dates: start: 200806, end: 200812
  2. 5 FLUORO URACIL [Concomitant]
     Indication: CHEMOTHERAPY
     Dosage: 650 MG, UNK
     Route: 042
     Dates: start: 200806, end: 200812
  3. LEUCOVORIN CALCIUM [Concomitant]
     Indication: CHEMOTHERAPY
     Dosage: 340 MG, UNK
     Route: 042
     Dates: start: 200806, end: 200812

REACTIONS (5)
  - Splenomegaly [Unknown]
  - Varices oesophageal [Unknown]
  - Gastric varices [Unknown]
  - Portal hypertension [Unknown]
  - Thrombocytopenia [Unknown]
